FAERS Safety Report 6512545-9 (Version None)
Quarter: 2009Q4

REPORT INFORMATION
  Report Type: 
  Country: None (occurrence: None)
  Receive Date: 20091222
  Receipt Date: 20091214
  Transmission Date: 20100525
  Serious: Yes (Hospitalization, Disabling)
  Sender: FDA-Public Use
  Company Number: PR-MERCK-0805USA02803

PATIENT
  Age: 79 Year
  Sex: Female
  Weight: 36 kg

DRUGS (9)
  1. FOSAMAX [Suspect]
     Indication: OSTEOPOROSIS
     Route: 048
     Dates: start: 19960101, end: 20080101
  2. FOSAMAX [Suspect]
     Route: 048
     Dates: start: 20060515, end: 20061101
  3. FOSAMAX [Suspect]
     Route: 048
     Dates: start: 20070511, end: 20070601
  4. FOSAMAX [Suspect]
     Route: 048
     Dates: start: 20071031, end: 20071101
  5. FOSAMAX [Suspect]
     Route: 048
     Dates: start: 20050101, end: 20070101
  6. FOSAMAX PLUS D [Suspect]
     Route: 048
     Dates: start: 20061220, end: 20070301
  7. FOSAMAX PLUS D [Suspect]
     Route: 048
     Dates: start: 20070911, end: 20071001
  8. XANAX [Concomitant]
     Indication: ANXIETY DISORDER
     Route: 065
     Dates: start: 19980101
  9. ACTONEL [Concomitant]
     Indication: OSTEOPOROSIS
     Route: 048
     Dates: start: 20070101, end: 20080101

REACTIONS (16)
  - ADVERSE EVENT [None]
  - ANXIETY [None]
  - ARTHRITIS [None]
  - BONE DENSITY DECREASED [None]
  - BONE DISORDER [None]
  - CEREBROVASCULAR ACCIDENT [None]
  - COGNITIVE DISORDER [None]
  - DECREASED APPETITE [None]
  - DEPRESSION [None]
  - EAR INFECTION [None]
  - HYPERLIPIDAEMIA [None]
  - INFECTION [None]
  - LOOSE TOOTH [None]
  - MASTICATION DISORDER [None]
  - OSTEONECROSIS [None]
  - SWELLING [None]
